FAERS Safety Report 8088981-9 (Version None)
Quarter: 2012Q1

REPORT INFORMATION
  Report Type: 
  Country: None (occurrence: None)
  Receive Date: 20120128
  Receipt Date: 20110707
  Transmission Date: 20120608
  Serious: No
  Sender: FDA-Public Use
  Company Number: US-ABBOTT-11P-163-0837197-00

PATIENT
  Age: 65 Year
  Sex: Female

DRUGS (16)
  1. UNKNOWN MEDICATIONS [Concomitant]
  2. UNKNOWN MEDICATIONS [Concomitant]
  3. UNKNOWN MEDICATIONS [Concomitant]
  4. UNKNOWN MEDICATIONS [Concomitant]
  5. UNKNOWN MEDICATIONS [Concomitant]
  6. UNKNOWN MEDICATIONS [Concomitant]
  7. HUMIRA [Suspect]
     Indication: FIBROMYALGIA
     Dates: end: 20080701
  8. UNKNOWN MEDICATIONS [Concomitant]
     Indication: PRODUCT USED FOR UNKNOWN INDICATION
  9. UNKNOWN MEDICATIONS [Concomitant]
  10. UNKNOWN MEDICATIONS [Concomitant]
  11. UNKNOWN MEDICATIONS [Concomitant]
  12. UNKNOWN MEDICATIONS [Concomitant]
  13. UNKNOWN MEDICATIONS [Concomitant]
  14. UNKNOWN MEDICATIONS [Concomitant]
  15. UNKNOWN MEDICATIONS [Concomitant]
  16. UNKNOWN MEDICATIONS [Concomitant]

REACTIONS (1)
  - DRUG INEFFECTIVE [None]
